FAERS Safety Report 8796066 (Version 1)
Quarter: 2012Q4

REPORT INFORMATION
  Report Type: 
  Country: US (occurrence: US)
  Receive Date: 20120919
  Receipt Date: 20120919
  Transmission Date: 20130627
  Serious: Yes (Hospitalization, Other)
  Sender: FDA-Public Use
  Company Number: US-SPECTRUM PHARMACEUTICALS, INC.-12-F-US-00131

PATIENT
  Age: 50 Year
  Sex: Female

DRUGS (5)
  1. FLUOROURACIL [Suspect]
     Indication: COLON CANCER STAGE III
     Dosage: 2400 mg/m2, over 46 hours
     Route: 042
  2. FLUOROURACIL [Suspect]
     Dosage: 400 mg/m2, UNK
     Route: 040
  3. OXALIPLATIN [Suspect]
     Indication: COLON CANCER STAGE III
     Dosage: 85 mg/m2, day 1
     Route: 042
  4. LEUCOVORIN [Suspect]
     Indication: COLON CANCER STAGE III
     Dosage: 400 mg/m2, over 2 hours
     Route: 042
  5. BEVACIZUMAB [Suspect]
     Indication: COLON CANCER STAGE III
     Dosage: 5 mg/kg, every 2 weeks
     Route: 065

REACTIONS (22)
  - Leukoencephalopathy [Recovered/Resolved]
  - Cerebrovascular accident [Recovered/Resolved]
  - Febrile neutropenia [Recovered/Resolved]
  - Alopecia [Unknown]
  - Dysphagia [Unknown]
  - Mucosal inflammation [Unknown]
  - Palmar-plantar erythrodysaesthesia syndrome [Unknown]
  - Photophobia [Unknown]
  - Tunnel vision [Unknown]
  - Skin exfoliation [Unknown]
  - Paraesthesia [Unknown]
  - Gait disturbance [Recovered/Resolved]
  - Asthenia [Recovered/Resolved]
  - Dysarthria [Recovered/Resolved]
  - Dysphonia [Recovered/Resolved]
  - Throat tightness [Recovered/Resolved]
  - Ataxia [Recovered/Resolved]
  - Cerebellar syndrome [Not Recovered/Not Resolved]
  - Aphasia [Not Recovered/Not Resolved]
  - Memory impairment [Not Recovered/Not Resolved]
  - Cerebellar syndrome [None]
  - Neurotoxicity [None]
